FAERS Safety Report 4285930-6 (Version None)
Quarter: 2004Q1

REPORT INFORMATION
  Report Type: 
  Country: None (occurrence: None)
  Receive Date: 20040205
  Receipt Date: 20040126
  Transmission Date: 20041129
  Serious: Yes (Hospitalization)
  Sender: FDA-Public Use
  Company Number: FR-GLAXOSMITHKLINE-B0321213A

PATIENT
  Age: 20 Year
  Sex: Male

DRUGS (1)
  1. ZYBAN [Suspect]
     Dosage: 150MG SEE DOSAGE TEXT
     Route: 048
     Dates: start: 20040116, end: 20040117

REACTIONS (7)
  - ANXIETY [None]
  - DRY MOUTH [None]
  - HEADACHE [None]
  - INTENTIONAL MISUSE [None]
  - OVERDOSE [None]
  - PALPITATIONS [None]
  - VERTIGO [None]
